FAERS Safety Report 9277958 (Version 1)
Quarter: 2013Q2

REPORT INFORMATION
  Report Type: Spontaneous
  Country: ES (occurrence: ES)
  Receive Date: 20130508
  Receipt Date: 20130508
  Transmission Date: 20140414
  Serious: Yes (Other)
  Sender: FDA-Public Use
  Company Number: PHHY2013ES044833

PATIENT
  Age: 48 Year
  Sex: Male

DRUGS (6)
  1. SANDIMMUN NEORAL [Suspect]
     Indication: CHOROIDITIS
     Dosage: 100 MG/ DAILY
     Route: 048
     Dates: start: 20050905, end: 20081205
  2. REMICADE [Suspect]
     Indication: CHOROIDITIS
     Dosage: 1125 MG, TID ON WEEKS 0,2 AND 6
     Route: 042
     Dates: start: 20081205, end: 20090116
  3. REMICADE [Suspect]
     Indication: OFF LABEL USE
  4. IMUREL [Suspect]
     Indication: CHOROIDITIS
     Dosage: 200 MG, DAILY
     Route: 048
     Dates: start: 20050905, end: 20081205
  5. PANTOPRAZOLE [Concomitant]
     Indication: OESOPHAGEAL ULCER
     Dosage: 30 MG, DAILY
     Route: 048
     Dates: start: 20071207
  6. LYMETEL PROLIB [Concomitant]
     Indication: HYPERCHOLESTEROLAEMIA
     Dosage: 80 MG, DAILY
     Route: 048
     Dates: start: 20071207

REACTIONS (2)
  - Lymph node tuberculosis [Recovered/Resolved]
  - Off label use [Recovered/Resolved]
